FAERS Safety Report 5756134-2 (Version None)
Quarter: 2008Q2

REPORT INFORMATION
  Report Type: 
  Country: None (occurrence: None)
  Receive Date: 20080602
  Receipt Date: 20080518
  Transmission Date: 20081010
  Serious: Yes (Hospitalization)
  Sender: FDA-Public Use
  Company Number: IL-GENENTECH-261065

PATIENT
  Sex: Female

DRUGS (4)
  1. BEVACIZUMAB [Suspect]
     Indication: BREAST CANCER METASTATIC
     Dosage: 780 MG, Q3W
     Route: 042
     Dates: start: 20071118
  2. VINORELBINE [Suspect]
     Indication: DRUG USE FOR UNKNOWN INDICATION
     Dosage: 49 MG, UNK
     Route: 042
     Dates: start: 20071101
  3. AREDIA [Concomitant]
     Indication: DRUG USE FOR UNKNOWN INDICATION
     Dates: start: 20071014, end: 20080210
  4. ZOLADEX [Concomitant]
     Indication: DRUG USE FOR UNKNOWN INDICATION
     Dates: start: 20060301

REACTIONS (2)
  - GINGIVITIS [None]
  - STOMATITIS [None]
